FAERS Safety Report 4981406-9 (Version None)
Quarter: 2006Q2

REPORT INFORMATION
  Report Type: 
  Country: None (occurrence: None)
  Receive Date: 20060424
  Receipt Date: 20060224
  Transmission Date: 20061013
  Serious: Yes (Hospitalization)
  Sender: FDA-Public Use
  Company Number: US-MERCK-0602USA05760

PATIENT
  Age: 47 Year
  Sex: Male
  Weight: 84 kg

DRUGS (4)
  1. VIOXX [Suspect]
     Indication: BACK PAIN
     Route: 048
     Dates: start: 19980101, end: 20040901
  2. VIOXX [Suspect]
     Route: 048
     Dates: start: 19980101, end: 20040901
  3. VIOXX [Suspect]
     Indication: NECK PAIN
     Route: 048
     Dates: start: 19980101, end: 20040901
  4. VIOXX [Suspect]
     Route: 048
     Dates: start: 19980101, end: 20040901

REACTIONS (2)
  - CEREBROVASCULAR ACCIDENT [None]
  - CHEST PAIN [None]
